FAERS Safety Report 20610463 (Version 1)
Quarter: 2022Q1

REPORT INFORMATION
  Report Type: Report from Study
  Country: DE (occurrence: DE)
  Receive Date: 20220318
  Receipt Date: 20220318
  Transmission Date: 20220423
  Serious: Yes (Life-Threatening, Hospitalization, Other)
  Sender: FDA-Public Use
  Company Number: DE-GILEAD-2022-0573216

PATIENT
  Age: 59 Year
  Sex: Male
  Weight: 80 kg

DRUGS (5)
  1. SOFOSBUVIR [Suspect]
     Active Substance: SOFOSBUVIR
     Indication: Chronic hepatitis C
     Dosage: 400 MG, QD
     Route: 065
     Dates: start: 20141010, end: 20150318
  2. DAKLINZA [Concomitant]
     Active Substance: DACLATASVIR
     Indication: Chronic hepatitis C
     Dosage: 60 MG, QD
     Route: 048
     Dates: start: 20141010, end: 20150318
  3. ACTRAPID [Concomitant]
     Active Substance: INSULIN HUMAN
  4. LANTUS [Concomitant]
     Active Substance: INSULIN GLARGINE
  5. AMLODIPINE BESYLATE\OLMESARTAN MEDOXOMIL [Concomitant]
     Active Substance: AMLODIPINE BESYLATE\OLMESARTAN MEDOXOMIL
     Dosage: UNK
     Dates: start: 20150219

REACTIONS (2)
  - Cerebral infarction [Recovering/Resolving]
  - Hepatocellular carcinoma [Unknown]

NARRATIVE: CASE EVENT DATE: 20210607
